FAERS Safety Report 14842065 (Version 1)
Quarter: 2018Q2

REPORT INFORMATION
  Report Type: Spontaneous
  Country: US (occurrence: US)
  Receive Date: 20180418
  Receipt Date: 20180418
  Transmission Date: 20180711
  Serious: No
  Sender: FDA-Public Use
  Company Number: None

PATIENT
  Age: 66 Year
  Sex: Male
  Weight: 72 kg

DRUGS (1)
  1. XIAFLEX [Suspect]
     Active Substance: COLLAGENASE CLOSTRIDIUM HISTOLYTICUM
     Indication: DUPUYTREN^S CONTRACTURE
     Dosage: .58 MG 1 SUBCUTANEOUS INTRALESIONAL?
     Route: 058

REACTIONS (10)
  - Dyspnoea [None]
  - Dysgeusia [None]
  - Chest discomfort [None]
  - Nausea [None]
  - Syncope [None]
  - Urinary incontinence [None]
  - Chest pain [None]
  - Dizziness [None]
  - Headache [None]
  - Hyperhidrosis [None]

NARRATIVE: CASE EVENT DATE: 20171023
